FAERS Safety Report 10246041 (Version 2)
Quarter: 2014Q2

REPORT INFORMATION
  Report Type: Spontaneous
  Country: BR (occurrence: BR)
  Receive Date: 20140619
  Receipt Date: 20140619
  Transmission Date: 20141212
  Serious: Yes (Death)
  Sender: FDA-Public Use
  Company Number: BR-JNJFOC-20140208403

PATIENT
  Age: 61 Year
  Sex: Male
  Weight: 70 kg

DRUGS (6)
  1. ZYTIGA [Suspect]
     Indication: PROSTATE CANCER
     Route: 048
     Dates: start: 20140207, end: 20140321
  2. MORPHINE [Concomitant]
     Indication: PAIN
     Route: 065
     Dates: start: 201203
  3. GABAPENTIN [Concomitant]
     Indication: PAIN
     Route: 065
     Dates: start: 201203
  4. DIPYRONE [Concomitant]
     Indication: PAIN
     Dosage: 40 DROPS
     Route: 065
     Dates: start: 201203
  5. OMEPRAZOLE [Concomitant]
     Indication: GASTRIC DISORDER
     Dosage: 40 DROPS
     Route: 065
     Dates: start: 201203
  6. PREDNISONE [Concomitant]
     Dosage: 40 DROPS
     Route: 065
     Dates: start: 20140207, end: 20140321

REACTIONS (6)
  - Death [Fatal]
  - Dry mouth [Unknown]
  - Somnolence [Unknown]
  - Prostatic specific antigen increased [Not Recovered/Not Resolved]
  - Decreased appetite [Not Recovered/Not Resolved]
  - Peripheral swelling [Not Recovered/Not Resolved]
